FAERS Safety Report 22233351 (Version 1)
Quarter: 2023Q2

REPORT INFORMATION
  Report Type: Other
  Country: IN (occurrence: None)
  Receive Date: 20230420
  Receipt Date: 20230420
  Transmission Date: 20230722
  Serious: Yes (Hospitalization)
  Sender: FDA-Public Use
  Company Number: IN-ROCHE-3332187

PATIENT
  Age: 42 Year
  Sex: Female

DRUGS (1)
  1. PERJETA [Suspect]
     Active Substance: PERTUZUMAB
     Indication: Lung neoplasm malignant
     Route: 042
     Dates: start: 20221201

REACTIONS (2)
  - Gastrointestinal disorder [Unknown]
  - Dysphagia [Unknown]
